FAERS Safety Report 16745213 (Version 1)
Quarter: 2019Q3

REPORT INFORMATION
  Report Type: Report from Study
  Country: FR (occurrence: FR)
  Receive Date: 20190827
  Receipt Date: 20190827
  Transmission Date: 20191005
  Serious: Yes (Death, Life-Threatening)
  Sender: FDA-Public Use
  Company Number: FR-PFIZER INC-2019365024

PATIENT
  Age: 71 Year
  Sex: Male
  Weight: 100 kg

DRUGS (9)
  1. ELIQUIS [Concomitant]
     Active Substance: APIXABAN
     Indication: ATRIAL FIBRILLATION
     Dosage: 5 MG, 1X/DAY
     Dates: start: 20180619, end: 20190211
  2. ADOPORT [Suspect]
     Active Substance: TACROLIMUS
     Dosage: 3 MG, UNK
     Route: 048
     Dates: start: 20190204
  3. LEVOFLOXACIN. [Suspect]
     Active Substance: LEVOFLOXACIN
     Indication: LUNG DISORDER
     Dosage: 500 MG, 1X/DAY
     Dates: start: 20190208, end: 20190212
  4. IODE [Concomitant]
     Active Substance: IODINE
     Dosage: UNK
     Dates: start: 20190209, end: 20190209
  5. ADOPORT [Suspect]
     Active Substance: TACROLIMUS
     Indication: RENAL TRANSPLANT
     Dosage: 2 MG, UNK
     Route: 048
     Dates: start: 20190211
  6. CORDARONE [Concomitant]
     Active Substance: AMIODARONE HYDROCHLORIDE
     Indication: CARDIOMYOPATHY
     Dosage: 200 MG, 1X/DAY
     Dates: start: 20180726, end: 20190212
  7. ELIQUIS [Concomitant]
     Active Substance: APIXABAN
     Dosage: 2.5 MG, 1X/DAY
     Route: 048
     Dates: start: 20190211, end: 20190212
  8. ADOPORT [Suspect]
     Active Substance: TACROLIMUS
     Dosage: 2 MG, UNK
     Route: 048
     Dates: start: 20180525
  9. CEFOTAXIME [Suspect]
     Active Substance: CEFOTAXIME SODIUM
     Indication: LUNG DISORDER
     Dosage: 3 G, 1X/DAY
     Dates: start: 20190206, end: 20190213

REACTIONS (2)
  - Psychomotor retardation [Fatal]
  - Acute kidney injury [Fatal]

NARRATIVE: CASE EVENT DATE: 20190209
